FAERS Safety Report 10535078 (Version 1)
Quarter: 2014Q4

REPORT INFORMATION
  Report Type: Spontaneous
  Country: US (occurrence: US)
  Receive Date: 20141022
  Receipt Date: 20141022
  Transmission Date: 20150529
  Serious: No
  Sender: FDA-Public Use
  Company Number: US-ASTRAZENECA-2014SE21713

PATIENT

DRUGS (1)
  1. CRESTOR [Suspect]
     Active Substance: ROSUVASTATIN CALCIUM
     Indication: HYPERLIPIDAEMIA
     Route: 048

REACTIONS (1)
  - Tendonitis [Recovered/Resolved]
